FAERS Safety Report 11780230 (Version 1)
Quarter: 2015Q4

REPORT INFORMATION
  Report Type: Spontaneous
  Country: US (occurrence: US)
  Receive Date: 20151126
  Receipt Date: 20151126
  Transmission Date: 20160305
  Serious: No
  Sender: FDA-Public Use
  Company Number: US-JNJFOC-20151014963

PATIENT
  Age: 5 Month
  Sex: Male
  Weight: 6.35 kg

DRUGS (1)
  1. INFANTS TYLENOL [Suspect]
     Active Substance: ACETAMINOPHEN
     Indication: TEETHING
     Dosage: 2.5ML ABOUT 20 MINUTES AGO
     Route: 048
     Dates: start: 20151019, end: 20151019

REACTIONS (1)
  - Extra dose administered [Unknown]
